FAERS Safety Report 4647909-1 (Version None)
Quarter: 2005Q2

REPORT INFORMATION
  Report Type: 
  Country: None (occurrence: None)
  Receive Date: 20050426
  Receipt Date: 20050426
  Transmission Date: 20051028
  Serious: Yes (Hospitalization)
  Sender: FDA-Public Use
  Company Number: None

PATIENT
  Age: 57 Year
  Sex: Male
  Weight: 106.5953 kg

DRUGS (8)
  1. ALEMTUZAMAB [Suspect]
     Indication: MYOSITIS
     Dosage: 30MG  QODA   X 4  INTRAVENOUS
     Route: 042
     Dates: start: 20050321, end: 20050328
  2. VALGANCICLOVIR [Concomitant]
  3. BACTRIM [Concomitant]
  4. CLOTRIMAZOL [Concomitant]
  5. AMBIEN [Concomitant]
  6. CARDURA [Concomitant]
  7. LASIX [Concomitant]
  8. POTASSIUM CHLORIDE [Concomitant]

REACTIONS (3)
  - DEEP VEIN THROMBOSIS [None]
  - JUGULAR VEIN THROMBOSIS [None]
  - POST PROCEDURAL COMPLICATION [None]
